FAERS Safety Report 12389190 (Version 2)
Quarter: 2016Q2

REPORT INFORMATION
  Report Type: Spontaneous
  Country: FR (occurrence: FR)
  Receive Date: 20160520
  Receipt Date: 20160601
  Transmission Date: 20160815
  Serious: Yes (Hospitalization, Other)
  Sender: FDA-Public Use
  Company Number: FR-PFIZER INC-2016257264

PATIENT
  Age: 64 Year
  Sex: Male

DRUGS (4)
  1. SKENAN [Concomitant]
     Active Substance: MORPHINE SULFATE
     Indication: PSORIATIC ARTHROPATHY
     Dosage: UNK
  2. ACTISKENAN [Concomitant]
     Active Substance: MORPHINE SULFATE
     Indication: PSORIATIC ARTHROPATHY
     Dosage: UNK
  3. CELEBREX [Suspect]
     Active Substance: CELECOXIB
     Indication: PSORIATIC ARTHROPATHY
     Dosage: 200 MG, 2X/DAY
     Route: 048
     Dates: start: 2004, end: 20160426
  4. CORTANCYL [Interacting]
     Active Substance: PREDNISONE
     Indication: PSORIATIC ARTHROPATHY
     Dosage: 20 MG, 1X/DAY
     Route: 048
     Dates: end: 20160426

REACTIONS (7)
  - Acute kidney injury [Recovered/Resolved]
  - Lung disorder [Recovered/Resolved]
  - Respiratory acidosis [Recovered/Resolved]
  - Sepsis [Recovered/Resolved]
  - Pneumonia [Recovered/Resolved]
  - Drug interaction [Recovered/Resolved]
  - Respiratory failure [Recovered/Resolved]

NARRATIVE: CASE EVENT DATE: 201604
